FAERS Safety Report 13694202 (Version 1)
Quarter: 2017Q2

REPORT INFORMATION
  Report Type: Spontaneous
  Country: US (occurrence: US)
  Receive Date: 20170627
  Receipt Date: 20170627
  Transmission Date: 20170830
  Serious: Yes (Disabling)
  Sender: FDA-Public Use
  Company Number: None

PATIENT
  Age: 53 Year
  Sex: Female
  Weight: 90 kg

DRUGS (5)
  1. ZINC. [Concomitant]
     Active Substance: ZINC
  2. LIPITOR [Concomitant]
     Active Substance: ATORVASTATIN CALCIUM
  3. ZOLOFT [Concomitant]
     Active Substance: SERTRALINE HYDROCHLORIDE
  4. LEVAQUIN [Suspect]
     Active Substance: LEVOFLOXACIN
     Indication: POST PROCEDURAL INFECTION
     Dosage: SUBLINGUAL
     Route: 060
  5. VITAMIND [Concomitant]

REACTIONS (1)
  - Tendon rupture [None]

NARRATIVE: CASE EVENT DATE: 20160810
